FAERS Safety Report 24850446 (Version 2)
Quarter: 2025Q1

REPORT INFORMATION
  Report Type: Spontaneous
  Country: US (occurrence: US)
  Receive Date: 20250116
  Receipt Date: 20250210
  Transmission Date: 20250409
  Serious: Yes (Other)
  Sender: TEVA
  Company Number: US-TEVA-VS-3284799

PATIENT
  Age: 52 Year
  Sex: Male

DRUGS (8)
  1. SUCRALFATE [Suspect]
     Active Substance: SUCRALFATE
     Indication: Gastritis haemorrhagic
     Route: 065
  2. IPILIMUMAB [Suspect]
     Active Substance: IPILIMUMAB
     Indication: Metastatic malignant melanoma
     Route: 065
  3. CYPROHEPTADINE [Suspect]
     Active Substance: CYPROHEPTADINE
     Indication: Gastritis haemorrhagic
     Route: 065
  4. FAMOTIDINE [Suspect]
     Active Substance: FAMOTIDINE
     Indication: Gastritis haemorrhagic
     Route: 065
  5. ONDANSETRON [Suspect]
     Active Substance: ONDANSETRON
     Indication: Gastritis haemorrhagic
     Route: 065
  6. METOCLOPRAMIDE [Suspect]
     Active Substance: METOCLOPRAMIDE
     Indication: Gastritis haemorrhagic
     Route: 065
  7. OMEPRAZOLE [Suspect]
     Active Substance: OMEPRAZOLE
     Indication: Gastritis haemorrhagic
     Route: 065
  8. PEMBROLIZUMAB [Suspect]
     Active Substance: PEMBROLIZUMAB
     Indication: Metastatic malignant melanoma
     Route: 065

REACTIONS (4)
  - Drug ineffective [Unknown]
  - Haematemesis [Recovered/Resolved]
  - Ulcer haemorrhage [Recovered/Resolved]
  - Gastritis haemorrhagic [Recovered/Resolved]
